FAERS Safety Report 8259581 (Version 2)
Quarter: 2013Q1

REPORT INFORMATION
  Report Type: Spontaneous
  Country: US (occurrence: US)
  Receive Date: 20111122
  Receipt Date: 20130117
  Transmission Date: 20140127
  Serious: Yes (Hospitalization)
  Sender: FDA-Public Use
  Company Number: US-GLAXOSMITHKLINE-A0917688A

PATIENT
  Age: 72 Year
  Sex: Female

DRUGS (1)
  1. AVANDIA [Suspect]
     Indication: DIABETES MELLITUS
     Route: 048

REACTIONS (6)
  - Cardiac disorder [Not Recovered/Not Resolved]
  - Cardiac failure congestive [Unknown]
  - Heart rate irregular [Unknown]
  - Asthenia [Unknown]
  - Cardiovascular disorder [Unknown]
  - Dyspnoea [Unknown]
